FAERS Safety Report 8208230-8 (Version None)
Quarter: 2012Q1

REPORT INFORMATION
  Report Type: 
  Country: None (occurrence: None)
  Receive Date: 20120314
  Receipt Date: 20120309
  Transmission Date: 20120608
  Serious: Yes (Hospitalization, Other)
  Sender: FDA-Public Use
  Company Number: PHHY2011JP107928

PATIENT
  Sex: Male
  Weight: 52 kg

DRUGS (4)
  1. AFINITOR [Suspect]
     Indication: METASTATIC RENAL CELL CARCINOMA
     Dosage: 10 MG, DAILY
     Route: 048
     Dates: start: 20100715, end: 20100722
  2. AFINITOR [Suspect]
     Dosage: 10 MG, DAILY
     Route: 048
     Dates: start: 20110708
  3. AFINITOR [Suspect]
     Dosage: 10 MG, DAILY
     Route: 048
     Dates: start: 20110212, end: 20110627
  4. AFINITOR [Suspect]
     Dosage: 10 MG, DAILY
     Route: 048
     Dates: start: 20100817, end: 20110129

REACTIONS (5)
  - HYPOTHYROIDISM [None]
  - PNEUMONIA PRIMARY ATYPICAL [None]
  - PYREXIA [None]
  - ANAEMIA [None]
  - MALAISE [None]
